FAERS Safety Report 9314255 (Version 2)
Quarter: 2013Q2

REPORT INFORMATION
  Report Type: Report from Study
  Country: AU (occurrence: AU)
  Receive Date: 20130529
  Receipt Date: 20130610
  Transmission Date: 20140414
  Serious: Yes (Disabling, Other)
  Sender: FDA-Public Use
  Company Number: PHHY2013AU052112

PATIENT
  Age: 64 Year
  Sex: Male
  Weight: 60 kg

DRUGS (6)
  1. SANDOSTATIN LAR [Suspect]
     Indication: CARCINOID SYNDROME
     Dosage: 30 MG,
     Route: 030
  2. SANDOSTATIN LAR [Suspect]
     Dosage: 30 MG, THREE WEEKLY
     Route: 030
     Dates: start: 20130521
  3. LASIX [Concomitant]
     Dosage: UNK UKN, MANE
     Route: 048
     Dates: start: 201304
  4. SOMAC [Concomitant]
     Dosage: 40 MG, DAILY
     Route: 048
     Dates: start: 201201
  5. STEMETIL ^SPECIA^ [Concomitant]
     Dosage: 5 MG, PRN
     Route: 048
     Dates: start: 201304
  6. DEXAMETHASONE [Concomitant]
     Dosage: 4 MG, AT MANE
     Route: 048
     Dates: start: 201304

REACTIONS (3)
  - Cardiac disorder [Not Recovered/Not Resolved]
  - Pancytopenia [Not Recovered/Not Resolved]
  - Thrombocytopenia [Unknown]
